FAERS Safety Report 13998933 (Version 3)
Quarter: 2017Q4

REPORT INFORMATION
  Report Type: Spontaneous
  Country: AU (occurrence: AU)
  Receive Date: 20170921
  Receipt Date: 20171228
  Transmission Date: 20180321
  Serious: Yes (Other)
  Sender: FDA-Public Use
  Company Number: AU-BAYER-2017-174731

PATIENT
  Age: 57 Year
  Sex: Male

DRUGS (1)
  1. NEXAVAR [Suspect]
     Active Substance: SORAFENIB
     Indication: HEPATOCELLULAR CARCINOMA
     Dosage: 400 MG, BID
     Dates: start: 201707

REACTIONS (8)
  - Diarrhoea [None]
  - Lethargy [None]
  - Pain of skin [None]
  - Hypertension [None]
  - Hepatocellular carcinoma [None]
  - Rash [None]
  - Pain in extremity [None]
  - Limb discomfort [None]

NARRATIVE: CASE EVENT DATE: 2017
